FAERS Safety Report 9710470 (Version 1)
Quarter: 2013Q4

REPORT INFORMATION
  Report Type: Spontaneous
  Country: US (occurrence: US)
  Receive Date: 20131126
  Receipt Date: 20131126
  Transmission Date: 20140711
  Serious: No
  Sender: FDA-Public Use
  Company Number: US-BRISTOL-MYERS SQUIBB COMPANY-19430594

PATIENT
  Age: 81 Year
  Sex: Female
  Weight: 80.72 kg

DRUGS (2)
  1. BYDUREON 2MG SUSPENSION [Suspect]
     Indication: TYPE 2 DIABETES MELLITUS
     Dosage: 2ND DOSE: 18-SEP-2013
     Route: 058
     Dates: start: 20130911
  2. GLIPIZIDE [Concomitant]

REACTIONS (3)
  - Underdose [Unknown]
  - Product quality issue [Unknown]
  - Blood glucose increased [Unknown]
